FAERS Safety Report 7025232-8 (Version None)
Quarter: 2010Q4

REPORT INFORMATION
  Report Type: 
  Country: None (occurrence: None)
  Receive Date: 20101001
  Receipt Date: 20100920
  Transmission Date: 20110411
  Serious: Yes (Other)
  Sender: FDA-Public Use
  Company Number: GB-WATSON-2010-13084

PATIENT
  Age: 66 Year
  Sex: Male
  Weight: 78 kg

DRUGS (6)
  1. CITALOPRAM HYDROBROMIDE [Suspect]
     Indication: ANXIETY
     Dosage: 20 MG, UNKNOWN
     Route: 048
     Dates: start: 20100911, end: 20100911
  2. CITALOPRAM HYDROBROMIDE [Suspect]
     Indication: DEPRESSION
  3. BENDROFLUMETHIAZIDE [Concomitant]
     Indication: PRODUCT USED FOR UNKNOWN INDICATION
     Dosage: 2 1/2 MG, UNK
     Route: 048
  4. BUPRENORPHINE [Concomitant]
     Indication: MOTOR NEURONE DISEASE
     Dosage: 5 MCG, UNK
     Route: 062
  5. FELODIPINE [Concomitant]
     Indication: PRODUCT USED FOR UNKNOWN INDICATION
     Dosage: 3 MG, UNK
     Route: 048
  6. RILUZOLE [Concomitant]
     Indication: MOTOR NEURONE DISEASE
     Dosage: 50 MG, BID
     Route: 048

REACTIONS (5)
  - ASTHENIA [None]
  - DIZZINESS [None]
  - HYPERHIDROSIS [None]
  - MALAISE [None]
  - NAUSEA [None]
